FAERS Safety Report 5308490-7 (Version None)
Quarter: 2007Q2

REPORT INFORMATION
  Report Type: 
  Country: None (occurrence: None)
  Receive Date: 20070426
  Receipt Date: 20070416
  Transmission Date: 20071010
  Serious: Yes (Hospitalization)
  Sender: FDA-Public Use
  Company Number: FR-JNJFOC-20070404890

PATIENT
  Age: 76 Year
  Sex: Female

DRUGS (21)
  1. ACETAMINOPHEN AND TRAMADOL HCL [Suspect]
     Indication: ARTHRALGIA
     Route: 048
  2. TAVANIC [Suspect]
     Indication: BACTERIAL INFECTION
     Route: 042
  3. MYOLASTAM [Suspect]
     Indication: JOINT STIFFNESS
     Route: 048
  4. CEFAMANDOLE NAFATE [Suspect]
     Indication: BACTERIAL INFECTION
     Route: 042
  5. DAFALGAN [Suspect]
     Indication: ARTHRALGIA
     Route: 065
  6. LANSOPRAZOLE [Concomitant]
     Route: 048
  7. VASTAREL [Concomitant]
     Route: 065
  8. TEMESTA [Concomitant]
     Route: 048
  9. FLUOXETINE [Concomitant]
     Route: 048
  10. SIMVASTATIN [Concomitant]
     Route: 065
  11. ARIXTRA [Concomitant]
     Route: 058
  12. LOVENOX [Concomitant]
     Route: 058
  13. ACUPAN [Concomitant]
     Route: 065
  14. IMOVANE [Concomitant]
     Route: 048
  15. LEXOMIL [Concomitant]
     Route: 065
  16. MORPHINE [Concomitant]
     Route: 065
  17. KETAMINE HCL [Concomitant]
     Route: 065
  18. EPHEDRINE SUL CAP [Concomitant]
     Route: 065
  19. DROLEPTAN [Concomitant]
     Route: 065
  20. DIPRIVAN [Concomitant]
     Route: 065
  21. SUFENTA [Concomitant]
     Route: 065

REACTIONS (4)
  - AGRANULOCYTOSIS [None]
  - DRUG TOXICITY [None]
  - LEUKOPENIA [None]
  - NEUTROPENIA [None]
